FAERS Safety Report 6070874-X (Version None)
Quarter: 2009Q1

REPORT INFORMATION
  Report Type: 
  Country: None (occurrence: None)
  Receive Date: 20090209
  Receipt Date: 20081028
  Transmission Date: 20090719
  Serious: Yes (Hospitalization)
  Sender: FDA-Public Use
  Company Number: A0753868A

PATIENT
  Age: 16 Year
  Sex: Female

DRUGS (8)
  1. PAXIL [Suspect]
     Indication: DEPRESSION
     Dosage: 10MG PER DAY
     Route: 048
     Dates: start: 20080401, end: 20080401
  2. WELLBUTRIN [Suspect]
     Indication: DEPRESSION
     Dosage: 150MG PER DAY
     Route: 048
     Dates: start: 20080414, end: 20080415
  3. CYMBALTA [Suspect]
     Indication: DEPRESSION
     Dosage: 60MG TWICE PER DAY
     Route: 048
     Dates: start: 20081026, end: 20081027
  4. EFFEXOR [Suspect]
     Indication: DEPRESSION
     Route: 048
     Dates: start: 20080101, end: 20080101
  5. SERTRALINE [Suspect]
     Indication: DEPRESSION
     Dosage: 50MG PER DAY
     Route: 048
     Dates: start: 20080321, end: 20080323
  6. TRAZODONE HCL [Suspect]
     Indication: DEPRESSION
     Dosage: 50MG PER DAY
     Route: 048
     Dates: start: 20080813, end: 20080817
  7. BENADRYL [Concomitant]
  8. BENZTROPINE [Concomitant]

REACTIONS (1)
  - TREMOR [None]
